FAERS Safety Report 10763320 (Version 4)
Quarter: 2015Q2

REPORT INFORMATION
  Report Type: Report from Study
  Country: JP (occurrence: JP)
  Receive Date: 20150204
  Receipt Date: 20150413
  Transmission Date: 20150821
  Serious: No
  Sender: FDA-Public Use
  Company Number: JP-GLAXOSMITHKLINE-JP2014JPN031431

PATIENT
  Age: 57 Year
  Sex: Female
  Weight: 56 kg

DRUGS (4)
  1. PAZOPANIB [Suspect]
     Active Substance: PAZOPANIB
     Indication: PHYLLODES TUMOUR
     Dosage: 800 MG, QD
     Route: 048
     Dates: start: 20141024, end: 20150111
  2. RABEPRAZOLE NA [Concomitant]
     Indication: ABDOMINAL DISCOMFORT
  3. PAZOPANIB [Suspect]
     Active Substance: PAZOPANIB
     Dosage: 800 MG, QD
     Route: 048
     Dates: start: 20150115, end: 20150119
  4. UNKNOWN DRUG [Concomitant]
     Active Substance: UNSPECIFIED INGREDIENT
     Indication: HYPERTENSION

REACTIONS (5)
  - Abdominal discomfort [Recovering/Resolving]
  - Hypertension [Recovering/Resolving]
  - Treatment noncompliance [Unknown]
  - Abdominal pain upper [Recovering/Resolving]
  - Malaise [Recovering/Resolving]

NARRATIVE: CASE EVENT DATE: 20141106
